FAERS Safety Report 14986768 (Version 3)
Quarter: 2018Q3

REPORT INFORMATION
  Report Type: Report from Study
  Country: CA (occurrence: CA)
  Receive Date: 20180608
  Receipt Date: 20180803
  Transmission Date: 20181010
  Serious: Yes (Other)
  Sender: FDA-Public Use
  Company Number: CA-BRISTOL-MYERS SQUIBB COMPANY-BMS-2018-046063

PATIENT
  Sex: Male

DRUGS (2)
  1. ABATACEPT [Suspect]
     Active Substance: ABATACEPT
     Indication: RHEUMATOID ARTHRITIS
     Dosage: 1000 MG, Q4WK
     Route: 042
     Dates: start: 20180322
  2. ABATACEPT [Suspect]
     Active Substance: ABATACEPT
     Indication: PRODUCT USED FOR UNKNOWN INDICATION
     Dosage: 750 MG, Q4WK
     Route: 042

REACTIONS (7)
  - Syncope [Recovered/Resolved]
  - Sneezing [Not Recovered/Not Resolved]
  - Arthropathy [Unknown]
  - Hyperhidrosis [Recovered/Resolved]
  - Eye haemorrhage [Not Recovered/Not Resolved]
  - Feeling hot [Recovered/Resolved]
  - Drug ineffective [Not Recovered/Not Resolved]
